FAERS Safety Report 5037118-9 (Version None)
Quarter: 2006Q2

REPORT INFORMATION
  Report Type: 
  Country: None (occurrence: None)
  Receive Date: 20060601
  Receipt Date: 20060207
  Transmission Date: 20061013
  Serious: No
  Sender: FDA-Public Use
  Company Number: 2006PV008321

PATIENT
  Age: 72 Year
  Sex: Female
  Weight: 60.3284 kg

DRUGS (5)
  1. BYETTA [Suspect]
     Indication: DIABETES MELLITUS NON-INSULIN-DEPENDENT
     Dosage: SEE IMAGE
     Route: 058
     Dates: start: 20050101, end: 20050101
  2. BYETTA [Suspect]
     Indication: DIABETES MELLITUS NON-INSULIN-DEPENDENT
     Dosage: SEE IMAGE
     Route: 058
     Dates: start: 20050101
  3. GLUCOPHAGE [Concomitant]
  4. BUMEX [Concomitant]
  5. WATER PILL [Concomitant]

REACTIONS (5)
  - DECREASED APPETITE [None]
  - DRUG INEFFECTIVE FOR UNAPPROVED INDICATION [None]
  - FLUID RETENTION [None]
  - WEIGHT DECREASED [None]
  - WEIGHT INCREASED [None]
